FAERS Safety Report 18886546 (Version 2)
Quarter: 2021Q1

REPORT INFORMATION
  Report Type: Spontaneous
  Country: RU (occurrence: RU)
  Receive Date: 20210212
  Receipt Date: 20210324
  Transmission Date: 20210420
  Serious: Yes (Hospitalization)
  Sender: FDA-Public Use
  Company Number: RU-BAYER-2021-063436

PATIENT
  Age: 38 Year
  Sex: Male
  Weight: 61 kg

DRUGS (4)
  1. PYRAZINAMIDE. [Concomitant]
     Active Substance: PYRAZINAMIDE
     Dosage: 1500 MG
     Route: 048
  2. SIRTURO [Concomitant]
     Active Substance: BEDAQUILINE FUMARATE
     Dosage: 200 MG
     Route: 048
  3. AVELOX [Suspect]
     Active Substance: MOXIFLOXACIN HYDROCHLORIDE
     Indication: TUBERCULOSIS
     Dosage: 400 MG, QD
     Route: 042
     Dates: start: 20210125, end: 20210126
  4. LINEZOLID. [Concomitant]
     Active Substance: LINEZOLID
     Dosage: 600 MG
     Route: 048

REACTIONS (6)
  - Tremor [Recovered/Resolved]
  - Drug hypersensitivity [Recovered/Resolved]
  - Dizziness [Recovered/Resolved]
  - Erythema [Recovered/Resolved]
  - Asthenia [Recovered/Resolved]
  - Infusion site reaction [Recovered/Resolved]

NARRATIVE: CASE EVENT DATE: 20210126
